FAERS Safety Report 10467558 (Version 1)
Quarter: 2014Q2

REPORT INFORMATION
  Report Type: Spontaneous
  Country: US (occurrence: None)
  Receive Date: 20140613
  Receipt Date: 20140613
  Transmission Date: 20141212
  Serious: No
  Sender: FDA-Public Use
  Company Number: US-2014-103038

PATIENT
  Age: 10 Year
  Sex: Male
  Weight: 27.5 kg

DRUGS (3)
  1. VIMIZIM [Suspect]
     Indication: MUCOPOLYSACCHARIDOSIS IV
     Route: 041
     Dates: start: 20140324
  2. BENADRYL /00000402/ (DIPHENHYDRAMINE HYDROCHLORIDE) [Concomitant]
  3. LMX (LIDOCAINE) [Concomitant]

REACTIONS (1)
  - Pallor [None]
